FAERS Safety Report 15790167 (Version 1)
Quarter: 2019Q1

REPORT INFORMATION
  Report Type: Spontaneous
  Country: US (occurrence: US)
  Receive Date: 20190104
  Receipt Date: 20190104
  Transmission Date: 20190417
  Serious: Yes (Other)
  Sender: FDA-Public Use
  Company Number: US-SA-2017SA268114

PATIENT
  Age: 55 Year
  Sex: Female
  Weight: 73.93 kg

DRUGS (2)
  1. TAXOTERE [Suspect]
     Active Substance: DOCETAXEL
     Indication: BREAST CANCER FEMALE
     Dosage: 136 MG, UNK
     Route: 042
     Dates: start: 20080309, end: 20080309
  2. TAXOTERE [Suspect]
     Active Substance: DOCETAXEL
     Dosage: 136 MG, UNK
     Route: 042
     Dates: start: 20080606, end: 20080606

REACTIONS (6)
  - Impaired quality of life [Unknown]
  - Anxiety [Unknown]
  - Emotional distress [Unknown]
  - Pain [Unknown]
  - Psychological trauma [Unknown]
  - Alopecia [Not Recovered/Not Resolved]

NARRATIVE: CASE EVENT DATE: 200804
